FAERS Safety Report 24809651 (Version 1)
Quarter: 2025Q1

REPORT INFORMATION
  Report Type: Spontaneous
  Country: CZ (occurrence: CZ)
  Receive Date: 20250106
  Receipt Date: 20250106
  Transmission Date: 20250408
  Serious: Yes (Other)
  Sender: MYLAN
  Company Number: CZ-MEDO2008-001736

PATIENT
  Sex: Female
  Weight: 95 kg

DRUGS (1)
  1. PREGABALIN [Suspect]
     Active Substance: PREGABALIN
     Indication: Axonal and demyelinating polyneuropathy
     Route: 065

REACTIONS (2)
  - Toxic skin eruption [Unknown]
  - Dermatitis allergic [Unknown]
